FAERS Safety Report 6611125-4 (Version None)
Quarter: 2010Q1

REPORT INFORMATION
  Report Type: 
  Country: None (occurrence: None)
  Receive Date: 20100303
  Receipt Date: 20100222
  Transmission Date: 20100710
  Serious: No
  Sender: FDA-Public Use
  Company Number: US-BIOGENIDEC-2010BI003494

PATIENT
  Age: 41 Year
  Sex: Female

DRUGS (4)
  1. TYSABRI [Suspect]
     Indication: MULTIPLE SCLEROSIS
     Route: 042
     Dates: start: 20080307, end: 20091120
  2. VITAMIN TAB [Concomitant]
  3. SEROQUEL [Concomitant]
     Dates: end: 20091101
  4. PROVIGIL [Concomitant]
     Dates: end: 20091101

REACTIONS (1)
  - PREGNANCY [None]
